FAERS Safety Report 6566585-4 (Version None)
Quarter: 2010Q1

REPORT INFORMATION
  Report Type: 
  Country: None (occurrence: None)
  Receive Date: 20100127
  Receipt Date: 20100115
  Transmission Date: 20100710
  Serious: Yes (Death, Hospitalization, Other)
  Sender: FDA-Public Use
  Company Number: CLOF-1000831

PATIENT
  Age: 67 Year
  Sex: Male

DRUGS (6)
  1. EVOLTRA (CLOFARABINE) SOLUTION FOR INFUSION [Suspect]
     Indication: ACUTE MYELOID LEUKAEMIA
     Dosage: 22.5 MG/M2, QDX5, INTRAVENOUS
     Route: 042
     Dates: start: 20090504, end: 20090508
  2. ZAVEDOS (IDARUBICIN HYDROCHLORIDE) SOLUTION FOR INFUSION [Suspect]
     Indication: ACUTE MYELOID LEUKAEMIA
     Dosage: 6 MG/M2, QDX3, INTRAVENOUS
     Route: 042
     Dates: start: 20090504, end: 20090506
  3. HYDROCORTONE [Concomitant]
  4. ACETAMINOPHEN [Concomitant]
  5. ZYRTEC [Concomitant]
  6. ZOFRAN [Concomitant]

REACTIONS (4)
  - ACUTE RESPIRATORY DISTRESS SYNDROME [None]
  - APLASIA [None]
  - BRONCHOPULMONARY ASPERGILLOSIS [None]
  - FEBRILE NEUTROPENIA [None]
